FAERS Safety Report 11550871 (Version 1)
Quarter: 2015Q3

REPORT INFORMATION
  Report Type: Spontaneous
  Country: US (occurrence: US)
  Receive Date: 20150903
  Receipt Date: 20150903
  Transmission Date: 20151125
  Serious: No
  Sender: FDA-Public Use
  Company Number: US-ELI_LILLY_AND_COMPANY-US201210002685

PATIENT
  Age: 60 Year
  Sex: Female

DRUGS (3)
  1. NOVOLOG MIX 70/30 [Concomitant]
     Active Substance: INSULIN ASPART
     Indication: TYPE 2 DIABETES MELLITUS
  2. HUMALOG MIX75/25 [Suspect]
     Active Substance: INSULIN LISPRO
     Indication: TYPE 2 DIABETES MELLITUS
     Dosage: UNK, UNKNOWN
     Route: 065
     Dates: start: 201209
  3. STATIN                             /00084401/ [Concomitant]
     Indication: BLOOD PRESSURE MEASUREMENT

REACTIONS (1)
  - Gravitational oedema [Unknown]

NARRATIVE: CASE EVENT DATE: 201210
